FAERS Safety Report 6056222-X (Version None)
Quarter: 2009Q1

REPORT INFORMATION
  Report Type: 
  Country: None (occurrence: None)
  Receive Date: 20090123
  Receipt Date: 20090123
  Transmission Date: 20090719
  Serious: Yes (Life-Threatening, Hospitalization)
  Sender: FDA-Public Use
  Company Number: None

PATIENT
  Sex: Male
  Weight: 75 kg

DRUGS (1)
  1. CO-TRIMOXAZOLE [Suspect]
     Indication: EPIDIDYMITIS
     Dates: start: 20081119, end: 20081201

REACTIONS (4)
  - DIARRHOEA [None]
  - DYSURIA [None]
  - PHOTOPHOBIA [None]
  - STEVENS-JOHNSON SYNDROME [None]
